FAERS Safety Report 14056492 (Version 17)
Quarter: 2020Q2

REPORT INFORMATION
  Report Type: Report from Study
  Country: US (occurrence: US)
  Receive Date: 20171006
  Receipt Date: 20200511
  Transmission Date: 20200713
  Serious: Yes (Hospitalization)
  Sender: FDA-Public Use
  Company Number: US-ROCHE-1996662

PATIENT
  Age: 77 Year
  Sex: Male
  Weight: 66.6 kg

DRUGS (24)
  1. RITUXIMAB. [Suspect]
     Active Substance: RITUXIMAB
     Indication: DIFFUSE LARGE B-CELL LYMPHOMA
     Dosage: MOST RECENT DOSE OF RITUXIMAB ON 14/SEP/2017 (650 MG)?-ON DAY 1 OF 21 DAYS CYCLE?DATE OF MOST RECENT
     Route: 042
     Dates: start: 20170624
  2. PREDNISONE. [Suspect]
     Active Substance: PREDNISONE
     Indication: DIFFUSE LARGE B-CELL LYMPHOMA
     Dosage: MOST RECENT DOSE OF PREDNISONE ON 14/SEP/2017 (100 MG/M^2)?-ON DAY 1 OF 21 DAYS CYCLE?DOSE OF LAST P
     Route: 048
     Dates: start: 20170625
  3. SENNA [Concomitant]
     Active Substance: SENNA LEAF\SENNOSIDES\SENNOSIDES A AND B
     Indication: CONSTIPATION
     Route: 065
     Dates: start: 20170621
  4. ACYCLOVIR [ACICLOVIR] [Concomitant]
     Active Substance: ACYCLOVIR
     Indication: ANTIVIRAL PROPHYLAXIS
     Route: 065
     Dates: start: 20170623
  5. PIPERACILLIN/TAZOBACTAM [Concomitant]
     Active Substance: PIPERACILLIN SODIUM\TAZOBACTAM SODIUM
     Indication: NEUTROPENIA
     Route: 065
     Dates: start: 20170922, end: 20170929
  6. ONDANSETRON [Concomitant]
     Active Substance: ONDANSETRON
     Indication: NAUSEA
     Dosage: CHEMOTHERAPY SUPPORT
     Route: 065
     Dates: start: 20170624
  7. MAGNESIUM SULFATE. [Concomitant]
     Active Substance: MAGNESIUM SULFATE
     Route: 065
     Dates: start: 20170918, end: 20171002
  8. VINCRISTINE [Suspect]
     Active Substance: VINCRISTINE
     Indication: DIFFUSE LARGE B-CELL LYMPHOMA
     Dosage: MOST RECENT DOSE OF VINCRISTINE ON 27/AUG/2017 (2 MG)?ON DAY 1 OF 21 DAYS CYCLE
     Route: 042
     Dates: start: 20170624
  9. MAGNESIUM OXIDE. [Concomitant]
     Active Substance: MAGNESIUM OXIDE
     Route: 065
     Dates: start: 20171002, end: 20171101
  10. AZITHROMYCIN ANHYDROUS. [Concomitant]
     Active Substance: AZITHROMYCIN ANHYDROUS
     Indication: NEUTROPENIA
     Route: 065
     Dates: start: 20170922, end: 20170926
  11. DOCUSATE SODIUM. [Concomitant]
     Active Substance: DOCUSATE SODIUM
     Indication: CONSTIPATION
     Route: 065
     Dates: start: 20170621
  12. PANTOPRAZOLE [Concomitant]
     Active Substance: PANTOPRAZOLE
     Dosage: INDICATION: REFLUX/STOMACH PROTECTION
     Route: 065
     Dates: start: 20170623
  13. ONDANSETRON [Concomitant]
     Active Substance: ONDANSETRON
     Indication: VOMITING
  14. ATORVASTATIN [Concomitant]
     Active Substance: ATORVASTATIN
     Route: 065
     Dates: start: 20170922, end: 20170924
  15. PEGFILGRASTIM [Concomitant]
     Active Substance: PEGFILGRASTIM
     Route: 065
     Dates: start: 20170915, end: 20170915
  16. POTASSIUM CHLORIDE. [Concomitant]
     Active Substance: POTASSIUM CHLORIDE
     Route: 065
     Dates: start: 20170919, end: 20170923
  17. ATEZOLIZUMAB. [Suspect]
     Active Substance: ATEZOLIZUMAB
     Indication: DIFFUSE LARGE B-CELL LYMPHOMA
     Dosage: MOST RECENT DOSE OF ATEZOLIZUMAB ON 24/AUG/2017 (1200 MG)?-ON DAY 1 FROM CYCLE 2, PER PROTOCOL, OF E
     Route: 042
     Dates: start: 20170713
  18. DOXORUBICIN [Suspect]
     Active Substance: DOXORUBICIN
     Indication: DIFFUSE LARGE B-CELL LYMPHOMA
     Dosage: MOST RECENT DOSE OF DOXORUBICIN ON 24/AUG/2017 (85 MG)?DOSE OF LAST DOXORUBICIN ADMINISTERED (90MG)
     Route: 042
     Dates: start: 20170624
  19. FLOMAX [Concomitant]
     Active Substance: TAMSULOSIN HYDROCHLORIDE
     Indication: PROSTATOMEGALY
     Route: 065
     Dates: start: 20170628
  20. PEGFILGRASTIM [Concomitant]
     Active Substance: PEGFILGRASTIM
     Indication: NEUTROPENIA
     Route: 065
     Dates: start: 20171006
  21. NORMAL SALINE [Concomitant]
     Active Substance: SODIUM CHLORIDE
     Dosage: SUPPLEMENT
     Route: 065
     Dates: start: 20170918, end: 20170918
  22. CYCLOPHOSPHAMIDE. [Suspect]
     Active Substance: CYCLOPHOSPHAMIDE
     Indication: DIFFUSE LARGE B-CELL LYMPHOMA
     Dosage: MOST RECENT DOSE OF CYCLOPHOSPHAMIDE ON 24/AUG/2017 (1300 MG)?-ON DAY 1 OF 21 DAYS CYCLE
     Route: 042
     Dates: start: 20170624
  23. ENOXAPARIN [Concomitant]
     Active Substance: ENOXAPARIN
     Route: 065
     Dates: start: 20170919, end: 20171002
  24. ADVAIR HFA [Concomitant]
     Active Substance: FLUTICASONE PROPIONATE\SALMETEROL XINAFOATE

REACTIONS (2)
  - Atrial fibrillation [Recovered/Resolved]
  - Hyperthyroidism [Recovered/Resolved]

NARRATIVE: CASE EVENT DATE: 20170913
